FAERS Safety Report 18315470 (Version 1)
Quarter: 2020Q3

REPORT INFORMATION
  Report Type: Spontaneous
  Country: US (occurrence: US)
  Receive Date: 20200926
  Receipt Date: 20200926
  Transmission Date: 20201103
  Serious: Yes (Other)
  Sender: FDA-Public Use
  Company Number: US-ACCORD-202362

PATIENT
  Age: 37 Year
  Sex: Female

DRUGS (3)
  1. PERTUZUMAB. [Suspect]
     Active Substance: PERTUZUMAB
     Indication: BREAST CANCER METASTATIC
     Dosage: EVERY THREE WEEKS FOR SIX DOSES
  2. TRASTUZUMAB. [Suspect]
     Active Substance: TRASTUZUMAB
     Indication: BREAST CANCER METASTATIC
     Dosage: EVERY THREE WEEKS FOR SIX DOSES
  3. DOCETAXEL. [Suspect]
     Active Substance: DOCETAXEL
     Indication: BREAST CANCER METASTATIC
     Dosage: EVERY THREE WEEKS FOR SIX DOSES

REACTIONS (4)
  - Iron deficiency anaemia [Unknown]
  - Menorrhagia [Unknown]
  - Thrombocytopenia [Unknown]
  - Haematochezia [Unknown]
